FAERS Safety Report 25036375 (Version 1)
Quarter: 2025Q1

REPORT INFORMATION
  Report Type: Spontaneous
  Country: US (occurrence: None)
  Receive Date: 20250304
  Receipt Date: 20250304
  Transmission Date: 20250409
  Serious: Yes (Hospitalization)
  Sender: FDA-CTU
  Company Number: None

PATIENT
  Age: 55 Year
  Sex: Female

DRUGS (12)
  1. QUTENZA [Suspect]
     Active Substance: CAPSAICIN
     Indication: Diabetic neuropathy
     Dates: start: 20240808
  2. QUTENZA [Suspect]
     Active Substance: CAPSAICIN
     Indication: Diabetes mellitus
  3. ALBUTEROL NEB 1.25MG/3 [Concomitant]
  4. AMITRIPTYLIN TAB 75MG [Concomitant]
  5. CALCITRIOL [Concomitant]
     Active Substance: CALCITRIOL
  6. CETIRIZINE HCL [Concomitant]
     Active Substance: CETIRIZINE HYDROCHLORIDE
  7. FLONASE ALGY SPR 50MCG [Concomitant]
  8. ACETAMINOPHEN\HYDROCODONE [Concomitant]
     Active Substance: ACETAMINOPHEN\HYDROCODONE
  9. LATANOPROST SOL 0.005% [Concomitant]
  10. MELATONIN TAB 10MG [Concomitant]
  11. OZEMPIC INJ 8MG/3ML [Concomitant]
  12. PROBIOTIC CAP [Concomitant]

REACTIONS (2)
  - Illness [None]
  - Therapy interrupted [None]

NARRATIVE: CASE EVENT DATE: 20250201
